FAERS Safety Report 19781916 (Version 1)
Quarter: 2021Q3

REPORT INFORMATION
  Report Type: Spontaneous
  Country: US (occurrence: US)
  Receive Date: 20210902
  Receipt Date: 20210902
  Transmission Date: 20211014
  Serious: No
  Sender: FDA-Public Use
  Company Number: US-ENDO PHARMACEUTICALS INC-2021-004834

PATIENT
  Sex: Female
  Weight: 90.72 kg

DRUGS (3)
  1. STEROID SHOT (UNSPECIFIED) [Suspect]
     Active Substance: UNSPECIFIED INGREDIENT
     Indication: IMMUNISATION REACTION
     Dosage: UNK UNKNOWN, SINGLE
     Route: 065
  2. ANTIBIOTICS (UNSPECIFIED) [Suspect]
     Active Substance: UNSPECIFIED INGREDIENT
     Indication: IMMUNISATION REACTION
     Dosage: UNK UNKNOWN, UNK
     Route: 065
  3. PREDNISONE. [Suspect]
     Active Substance: PREDNISONE
     Indication: IMMUNISATION REACTION
     Dosage: UNK UNKNOWN, UNK
     Route: 065

REACTIONS (1)
  - Drug ineffective [Unknown]
